FAERS Safety Report 4507719-2 (Version None)
Quarter: 2004Q4

REPORT INFORMATION
  Report Type: 
  Country: None (occurrence: None)
  Receive Date: 20040928
  Receipt Date: 20040706
  Transmission Date: 20050328
  Serious: Yes (Death)
  Sender: FDA-Public Use
  Company Number: 04P-163-0266183-00

PATIENT
  Age: 58 Year
  Sex: Female

DRUGS (8)
  1. HUMIRA [Suspect]
     Indication: RHEUMATOID ARTHRITIS
     Dosage: 40 MG, 1 IN 2 WK, SUBCUTANEOUS
     Route: 058
     Dates: start: 20040404
  2. METHOTREXATE [Concomitant]
  3. NEBULIZER [Concomitant]
  4. OXYGEN [Concomitant]
  5. SERTRALINE HYDROCHLORIDE [Concomitant]
  6. MIRTAZAPINE [Concomitant]
  7. PREDNISONE [Concomitant]
  8. FOLIC ACID [Concomitant]

REACTIONS (1)
  - DEATH [None]
